FAERS Safety Report 26080180 (Version 1)
Quarter: 2025Q4

REPORT INFORMATION
  Report Type: Spontaneous
  Country: CN (occurrence: CN)
  Receive Date: 20251124
  Receipt Date: 20251124
  Transmission Date: 20260118
  Serious: No
  Sender: ALKEM
  Company Number: CN-ALKEM LABORATORIES LIMITED-CN-ALKEM-2025-06860

PATIENT
  Age: 30 Year
  Sex: Female

DRUGS (12)
  1. ISONIAZID [Suspect]
     Active Substance: ISONIAZID
     Indication: Disseminated tuberculosis
     Dosage: 0.6 GRAM, QD
     Route: 065
  2. ISONIAZID [Suspect]
     Active Substance: ISONIAZID
     Dosage: 0.6 GRAM, QD (INTENSIVE THERAPY FOR 2 MONTHS)
     Route: 065
  3. ISONIAZID [Suspect]
     Active Substance: ISONIAZID
     Dosage: 0.6 GRAM, QD (CONSOLIDATION THERAPY FOR 10 MONTHS)
     Route: 065
  4. DYDROGESTERONE [Suspect]
     Active Substance: DYDROGESTERONE
     Indication: Disseminated tuberculosis
     Dosage: 10 MILLIGRAM
     Route: 048
  5. ETHAMBUTOL [Suspect]
     Active Substance: ETHAMBUTOL HYDROCHLORIDE
     Indication: Disseminated tuberculosis
     Dosage: 0.75 GRAM, QD
     Route: 065
  6. ETHAMBUTOL [Suspect]
     Active Substance: ETHAMBUTOL HYDROCHLORIDE
     Dosage: 0.75 GRAM, QD (INTENSIVE THERAPY FOR 2 MONTHS)
     Route: 065
  7. PYRAZINAMIDE [Suspect]
     Active Substance: PYRAZINAMIDE
     Indication: Disseminated tuberculosis
     Dosage: 1.5 GRAM, QD
     Route: 065
  8. PYRAZINAMIDE [Suspect]
     Active Substance: PYRAZINAMIDE
     Dosage: 0.5 GRAM, TID (INTENSIVE THERAPY FOR 2 MONTHS)
     Route: 065
  9. RIFAMPIN [Suspect]
     Active Substance: RIFAMPIN
     Indication: Disseminated tuberculosis
     Dosage: 0.45 GRAM, QD
     Route: 065
  10. RIFAMPIN [Suspect]
     Active Substance: RIFAMPIN
     Dosage: 0.45 GRAM, QD (INTENSIVE THERAPY FOR 2 MONTHS)
     Route: 065
  11. RIFAMPIN [Suspect]
     Active Substance: RIFAMPIN
     Dosage: 0.45 GRAM, QD (CONSOLIDATION THERAPY FOR 10 MONTHS)
     Route: 065
  12. STREPTOMYCIN [Suspect]
     Active Substance: STREPTOMYCIN SULFATE
     Indication: Disseminated tuberculosis
     Dosage: 0.75 GRAM, QD
     Route: 065

REACTIONS (1)
  - Exposure during pregnancy [Unknown]
